FAERS Safety Report 8407760-3 (Version None)
Quarter: 2012Q2

REPORT INFORMATION
  Report Type: 
  Country: None (occurrence: None)
  Receive Date: 20120604
  Receipt Date: 20120529
  Transmission Date: 20120825
  Serious: Yes (Congenital Anomaly)
  Sender: FDA-Public Use
  Company Number: US-GLAXOSMITHKLINE-A0979812A

PATIENT
  Sex: Male

DRUGS (4)
  1. NATAL VITAMINS [Concomitant]
  2. ATENOLOL [Concomitant]
     Route: 064
     Dates: end: 20010424
  3. PAXIL [Suspect]
     Indication: PRODUCT USED FOR UNKNOWN INDICATION
     Dosage: 20MG PER DAY
     Route: 064
  4. LABETALOL HCL [Concomitant]

REACTIONS (2)
  - CARDIAC MURMUR [None]
  - FOETAL EXPOSURE DURING PREGNANCY [None]
